FAERS Safety Report 16206533 (Version 1)
Quarter: 2019Q2

REPORT INFORMATION
  Report Type: Spontaneous
  Country: GB (occurrence: GB)
  Receive Date: 20190417
  Receipt Date: 20190417
  Transmission Date: 20190711
  Serious: Yes (Hospitalization)
  Sender: FDA-Public Use
  Company Number: GB-TEVA-2019-GB-1038095

PATIENT
  Age: 93 Year
  Sex: Female
  Weight: 42 kg

DRUGS (10)
  1. LANSOPRAZOLE. [Concomitant]
     Active Substance: LANSOPRAZOLE
  2. CASSIA (SENNA ALEXANDRINA) [Concomitant]
     Active Substance: HERBALS\SENNOSIDES
  3. MOVICOL [Concomitant]
     Active Substance: POLYETHYLENE GLYCOL 3350\POTASSIUM CHLORIDE\SODIUM BICARBONATE\SODIUM CHLORIDE
  4. BUPRENORPHINE. [Suspect]
     Active Substance: BUPRENORPHINE
     Indication: PAIN
     Dosage: APPLY ONE 5MICROGRAM/HOUR PATCH WEEKLY
     Route: 062
     Dates: start: 20180901, end: 20190316
  5. SIMVASTATIN. [Concomitant]
     Active Substance: SIMVASTATIN
  6. ACETYLSALICYLIC ACID [Concomitant]
     Active Substance: ASPIRIN
  7. CODEINE [Concomitant]
     Active Substance: CODEINE
  8. ADCAL-D3 [Concomitant]
     Active Substance: CALCIUM CARBONATE\CHOLECALCIFEROL
  9. PARACETAMOL [Concomitant]
     Active Substance: ACETAMINOPHEN
  10. FUROSEMIDE. [Concomitant]
     Active Substance: FUROSEMIDE

REACTIONS (3)
  - Toxicity to various agents [Recovering/Resolving]
  - Miosis [Unknown]
  - Unresponsive to stimuli [Recovered/Resolved]

NARRATIVE: CASE EVENT DATE: 20190315
